FAERS Safety Report 24273652 (Version 1)
Quarter: 2024Q3

REPORT INFORMATION
  Report Type: Spontaneous
  Country: US (occurrence: US)
  Receive Date: 20240902
  Receipt Date: 20240902
  Transmission Date: 20241017
  Serious: No
  Sender: ASTELLAS
  Company Number: US-ASTELLAS-2024US014860

PATIENT
  Age: 8 Decade
  Sex: Female

DRUGS (1)
  1. PADCEV [Suspect]
     Active Substance: ENFORTUMAB VEDOTIN-EJFV
     Indication: Metastasis
     Dosage: 30 MG, CYCLIC (D1 AND D8, Q21D INTO 12 CYCLES)
     Route: 042
     Dates: start: 20240514

REACTIONS (2)
  - Product storage error [Unknown]
  - Off label use [Unknown]

NARRATIVE: CASE EVENT DATE: 20240514
